FAERS Safety Report 16498419 (Version 2)
Quarter: 2025Q3

REPORT INFORMATION
  Report Type: Spontaneous
  Country: EU (occurrence: EU)
  Receive Date: 20190629
  Receipt Date: 20250722
  Transmission Date: 20251021
  Serious: Yes (Death)
  Sender: AUROBINDO
  Company Number: EU-AUROBINDO-AUR-APL-2019-036753

PATIENT
  Age: 76 Year
  Sex: Female

DRUGS (5)
  1. VORICONAZOLE [Suspect]
     Active Substance: VORICONAZOLE
     Indication: Scopulariopsis infection
     Route: 042
  2. TERBINAFINE [Suspect]
     Active Substance: TERBINAFINE
     Indication: Scopulariopsis infection
     Route: 065
  3. AMPHOTERICIN B [Suspect]
     Active Substance: AMPHOTERICIN B
     Indication: Scopulariopsis infection
     Route: 065
  4. MICAFUNGIN [Suspect]
     Active Substance: MICAFUNGIN SODIUM
     Indication: Scopulariopsis infection
     Dosage: 100 MILLIGRAM, ONCE A DAY
     Route: 042
  5. MICAFUNGIN [Suspect]
     Active Substance: MICAFUNGIN SODIUM
     Dosage: 200 MG, 1X/DAY (AFTER 3 WEEKS OF TREATMENT, ADMINISTERED FOR 4 WEEKS)
     Route: 042

REACTIONS (3)
  - Drug ineffective [Fatal]
  - Product use in unapproved indication [Unknown]
  - Off label use [Unknown]
